FAERS Safety Report 8411928-X (Version None)
Quarter: 2012Q2

REPORT INFORMATION
  Report Type: 
  Country: None (occurrence: None)
  Receive Date: 20120605
  Receipt Date: 20120516
  Transmission Date: 20120825
  Serious: No
  Sender: FDA-Public Use
  Company Number: US-AMGEN-USASP2012030946

PATIENT
  Sex: Female

DRUGS (11)
  1. ENBREL [Suspect]
     Indication: RHEUMATOID ARTHRITIS
     Dosage: 50 MG, QWK
  2. VITAMIN D                          /00318501/ [Concomitant]
     Dosage: UNK
  3. LOTREL [Concomitant]
     Dosage: UNK
  4. HYDROCHLOROTHIAZIDE [Concomitant]
     Dosage: UNK
  5. SIMVASTATIN [Concomitant]
     Dosage: UNK
  6. METHOTREXATE [Concomitant]
     Dosage: UNK
  7. VITAMIN C                          /00008001/ [Concomitant]
     Dosage: UNK
  8. FOLIC ACID [Concomitant]
     Dosage: UNK
  9. VITAMIN E                          /00110501/ [Concomitant]
     Dosage: UNK
  10. OMEPRAZOLE [Concomitant]
     Dosage: UNK
  11. ATENOLOL [Concomitant]
     Dosage: 1 MG, UNK

REACTIONS (5)
  - CARCINOEMBRYONIC ANTIGEN INCREASED [None]
  - MALAISE [None]
  - WEIGHT DECREASED [None]
  - CAMPYLOBACTER INFECTION [None]
  - BOWEL MOVEMENT IRREGULARITY [None]
